FAERS Safety Report 4317064-6 (Version None)
Quarter: 2004Q1

REPORT INFORMATION
  Report Type: 
  Country: None (occurrence: None)
  Receive Date: 20040312
  Receipt Date: 20040302
  Transmission Date: 20041129
  Serious: Yes (Other)
  Sender: FDA-Public Use
  Company Number: 2003184723JP

PATIENT
  Age: 5 Year
  Sex: 0
  Weight: 18 kg

DRUGS (2)
  1. ALDACTONE [Suspect]
     Dosage: ORAL
     Route: 048
  2. ENALAPRIL MALEATE [Suspect]
     Dosage: 10 MG,

REACTIONS (3)
  - ANAEMIA [None]
  - BONE MARROW DEPRESSION [None]
  - RENAL DISORDER [None]
